FAERS Safety Report 8941401 (Version 1)
Quarter: 2012Q4

REPORT INFORMATION
  Report Type: 
  Country: US (occurrence: US)
  Receive Date: 20121203
  Receipt Date: 20121203
  Transmission Date: 20130627
  Serious: No
  Sender: FDA-Public Use
  Company Number: US-PFIZER INC-2012302068

PATIENT
  Age: 48 Year
  Sex: Female
  Weight: 68.03 kg

DRUGS (4)
  1. LYRICA [Suspect]
     Indication: CHRONIC PAIN
     Dosage: 75 mg, 2x/day
     Route: 048
     Dates: start: 201207, end: 201208
  2. LYRICA [Suspect]
     Dosage: 150 mg, 2x/day
     Route: 048
     Dates: start: 201208
  3. LYRICA [Suspect]
     Dosage: UNK
     Route: 048
  4. ZOLOFT [Concomitant]
     Dosage: UNK

REACTIONS (1)
  - Urinary incontinence [Unknown]
